FAERS Safety Report 5171571-5 (Version None)
Quarter: 2006Q4

REPORT INFORMATION
  Report Type: 
  Country: None (occurrence: None)
  Receive Date: 20061213
  Receipt Date: 20060712
  Transmission Date: 20070319
  Serious: Yes (Hospitalization)
  Sender: FDA-Public Use
  Company Number: US-AMGEN-STX186147

PATIENT
  Sex: Female

DRUGS (3)
  1. ENBREL [Suspect]
     Indication: RHEUMATOID ARTHRITIS
     Route: 058
     Dates: start: 20050801
  2. METHOTREXATE [Concomitant]
     Route: 048
  3. ARAVA [Concomitant]
     Route: 048

REACTIONS (3)
  - CHEST PAIN [None]
  - DERMATITIS CONTACT [None]
  - TACHYCARDIA [None]
